FAERS Safety Report 5886966-1 (Version None)
Quarter: 2008Q3

REPORT INFORMATION
  Report Type: 
  Country: None (occurrence: None)
  Receive Date: 20080917
  Receipt Date: 20080904
  Transmission Date: 20090109
  Serious: No
  Sender: FDA-Public Use
  Company Number: US-B.I. PHARMACEUTICALS,INC./RIDGEFIELD-2008-BP-14013BP

PATIENT
  Age: 77 Year
  Sex: Male

DRUGS (8)
  1. CLONIDINE HCL [Suspect]
     Indication: HYPERTENSION
     Dosage: .1MG
     Route: 048
     Dates: start: 20080801
  2. AGGRENOX [Concomitant]
  3. FLOMAX [Concomitant]
  4. GLYBURIDE [Concomitant]
     Indication: DIABETES MELLITUS
  5. NORVASC [Concomitant]
     Indication: HYPERTENSION
  6. METFORMIN HCL [Concomitant]
     Indication: DIABETES MELLITUS
  7. OXYBUTIN [Concomitant]
     Indication: PAIN
  8. COREG [Concomitant]
     Indication: CARDIAC DISORDER

REACTIONS (2)
  - LETHARGY [None]
  - MYALGIA [None]
